FAERS Safety Report 7273278-7 (Version None)
Quarter: 2011Q1

REPORT INFORMATION
  Report Type: 
  Country: None (occurrence: None)
  Receive Date: 20110203
  Receipt Date: 20101230
  Transmission Date: 20110831
  Serious: No
  Sender: FDA-Public Use
  Company Number: US-ABBOTT-10P-163-0684419-00

PATIENT
  Sex: Female
  Weight: 77.18 kg

DRUGS (2)
  1. MULTI-VITAMIN [Concomitant]
     Indication: PRODUCT USED FOR UNKNOWN INDICATION
  2. SYNTHROID [Suspect]
     Indication: AUTOIMMUNE THYROIDITIS
     Dates: start: 20101104

REACTIONS (7)
  - DYSPNOEA [None]
  - MUSCULOSKELETAL STIFFNESS [None]
  - TEMPERATURE INTOLERANCE [None]
  - FATIGUE [None]
  - MYALGIA [None]
  - FEELING ABNORMAL [None]
  - MUSCULAR WEAKNESS [None]
